FAERS Safety Report 9988488 (Version 1)
Quarter: 2014Q1

REPORT INFORMATION
  Report Type: Spontaneous
  Country: US (occurrence: US)
  Receive Date: 20140310
  Receipt Date: 20140310
  Transmission Date: 20141002
  Serious: No
  Sender: FDA-Public Use
  Company Number: US-BIOGENIDEC-2014BI017490

PATIENT
  Age: 48 Year
  Sex: Male

DRUGS (10)
  1. TECFIDERA [Suspect]
     Indication: MULTIPLE SCLEROSIS
     Route: 048
     Dates: start: 20130911, end: 20130917
  2. TECFIDERA [Suspect]
     Indication: MULTIPLE SCLEROSIS
     Route: 048
     Dates: start: 20130918
  3. OXYCONTIN [Concomitant]
  4. EFFEXOR [Concomitant]
  5. WELLBUTRIN [Concomitant]
  6. PROVIGIL [Concomitant]
  7. CLONAZEPAM [Concomitant]
  8. RITALIN [Concomitant]
  9. MEDICINAL MARIJUANA [Concomitant]
  10. ASPIRIN [Concomitant]

REACTIONS (3)
  - Vision blurred [Unknown]
  - Optic atrophy [Unknown]
  - Nausea [Unknown]
